FAERS Safety Report 16260794 (Version 1)
Quarter: 2019Q2

REPORT INFORMATION
  Report Type: Spontaneous
  Country: IT (occurrence: IT)
  Receive Date: 20190501
  Receipt Date: 20190501
  Transmission Date: 20190711
  Serious: Yes (Hospitalization)
  Sender: FDA-Public Use
  Company Number: IT-TEVA-2019-IT-1043460

PATIENT
  Age: 69 Year
  Sex: Female

DRUGS (5)
  1. PASADEN [Concomitant]
     Active Substance: ETIZOLAM
  2. ZOLOFT [Concomitant]
     Active Substance: SERTRALINE HYDROCHLORIDE
  3. LEVOFLOXACIN. [Suspect]
     Active Substance: LEVOFLOXACIN
     Route: 065
  4. LASIX [Concomitant]
     Active Substance: FUROSEMIDE
  5. LYRICA [Concomitant]
     Active Substance: PREGABALIN

REACTIONS (3)
  - Tongue oedema [Unknown]
  - Erysipelas [Unknown]
  - Hypertension [Unknown]

NARRATIVE: CASE EVENT DATE: 20181215
